FAERS Safety Report 21498955 (Version 2)
Quarter: 2022Q4

REPORT INFORMATION
  Report Type: Report from Study
  Country: CA (occurrence: None)
  Receive Date: 20221024
  Receipt Date: 20221118
  Transmission Date: 20230112
  Serious: Yes (Death, Other)
  Sender: FDA-Public Use
  Company Number: 2022A352098

PATIENT
  Age: 28602 Day
  Sex: Female

DRUGS (4)
  1. FASENRA [Suspect]
     Active Substance: BENRALIZUMAB
     Indication: Asthma
     Dosage: 30.0MG UNKNOWN
     Route: 058
     Dates: start: 20180629
  2. SYMBICORT [Concomitant]
     Active Substance: BUDESONIDE\FORMOTEROL FUMARATE DIHYDRATE
     Dosage: 2 PUFFS BID
  3. VENTOLIN [Concomitant]
     Active Substance: ALBUTEROL SULFATE
  4. ZADETIN [Concomitant]

REACTIONS (6)
  - Death [Fatal]
  - Loss of consciousness [Unknown]
  - COVID-19 [Unknown]
  - Staphylococcal infection [Unknown]
  - Feeding disorder [Unknown]
  - Fluid intake reduced [Unknown]

NARRATIVE: CASE EVENT DATE: 20221017
